FAERS Safety Report 24022284 (Version 1)
Quarter: 2024Q2

REPORT INFORMATION
  Report Type: Spontaneous
  Country: IT (occurrence: IT)
  Receive Date: 20240627
  Receipt Date: 20240627
  Transmission Date: 20240717
  Serious: No
  Sender: FDA-Public Use
  Company Number: None

PATIENT
  Age: 66 Year
  Sex: Female

DRUGS (7)
  1. ROZLYTREK [Suspect]
     Active Substance: ENTRECTINIB
     Indication: Breast cancer
     Dosage: 200 MG 3CP/DIE
     Route: 065
     Dates: start: 20231006, end: 20240129
  2. ARIXTRA [Concomitant]
     Active Substance: FONDAPARINUX SODIUM
     Indication: Deep vein thrombosis
     Dosage: 7.5 MG 1FL /DIE
  3. LASIX [Concomitant]
     Active Substance: FUROSEMIDE
     Dosage: 25 MG 2CP/DIE
  4. ATORVASTATIN [Concomitant]
     Active Substance: ATORVASTATIN
     Dosage: 20 MG
  5. CALCIFEDIOL [Concomitant]
     Active Substance: CALCIFEDIOL
     Dosage: 10 GTT /DIE
  6. ENALAPRIL [Concomitant]
     Active Substance: ENALAPRIL
     Indication: Hypertension
     Dosage: 20 MG
  7. LANSOPRAZOLE [Concomitant]
     Active Substance: LANSOPRAZOLE
     Indication: Gastritis
     Dosage: 15 MG

REACTIONS (3)
  - Paraesthesia [Not Recovered/Not Resolved]
  - Urticaria [Not Recovered/Not Resolved]
  - Gravitational oedema [Not Recovered/Not Resolved]

NARRATIVE: CASE EVENT DATE: 20240129
